FAERS Safety Report 20428603 (Version 1)
Quarter: 2022Q1

REPORT INFORMATION
  Report Type: Spontaneous
  Country: CN (occurrence: None)
  Receive Date: 20220204
  Receipt Date: 20220204
  Transmission Date: 20220423
  Serious: Yes (Other)
  Sender: FDA-Public Use
  Company Number: 2022A049974

PATIENT
  Age: 61 Year
  Sex: Female
  Weight: 50 kg

DRUGS (1)
  1. IMFINZI [Suspect]
     Active Substance: DURVALUMAB
     Indication: Non-small cell lung cancer stage III
     Dosage: 500.0MG UNKNOWN
     Route: 042
     Dates: start: 20210728, end: 20210831

REACTIONS (3)
  - Myelosuppression [Unknown]
  - Skin ulcer [Unknown]
  - White blood cell count decreased [Unknown]
